FAERS Safety Report 13854545 (Version 1)
Quarter: 2017Q3

REPORT INFORMATION
  Report Type: Spontaneous
  Country: US (occurrence: US)
  Receive Date: 20170809
  Receipt Date: 20170809
  Transmission Date: 20171127
  Serious: No
  Sender: FDA-Public Use
  Company Number: GXBR2017US000500

PATIENT
  Sex: Female

DRUGS (1)
  1. METHYLPREDNISOLONE TABLETS USP [Suspect]
     Active Substance: METHYLPREDNISOLONE
     Indication: PRODUCT USED FOR UNKNOWN INDICATION
     Dosage: 4 MG QD (DAY ONE 6 AND DAY TWO 5 TABLETS)
     Route: 065

REACTIONS (2)
  - Abdominal pain upper [Unknown]
  - Abdominal discomfort [Recovered/Resolved]
